FAERS Safety Report 6684135-9 (Version None)
Quarter: 2010Q2

REPORT INFORMATION
  Report Type: 
  Country: None (occurrence: None)
  Receive Date: 20100416
  Receipt Date: 20100406
  Transmission Date: 20101027
  Serious: Yes (Life-Threatening, Hospitalization)
  Sender: FDA-Public Use
  Company Number: CA-MYLANLABS-2010S1005985

PATIENT
  Age: 64 Year
  Sex: Female
  Weight: 125.01 kg

DRUGS (8)
  1. EXEMESTANE [Suspect]
     Indication: BREAST CANCER
     Dates: start: 20060101
  2. METOPROLOL TARTRATE [Suspect]
  3. TRIAMTERENE AND HYDROCHLOROTHIAZIDE [Suspect]
  4. ZOCOR [Suspect]
  5. AVANDAMET [Suspect]
  6. FOSAMAX [Suspect]
  7. LISINOPRIL [Suspect]
  8. CALCIUM WITH VITAMIN D [Concomitant]

REACTIONS (1)
  - PULMONARY EMBOLISM [None]
